FAERS Safety Report 21615172 (Version 1)
Quarter: 2022Q4

REPORT INFORMATION
  Report Type: Spontaneous
  Country: DE (occurrence: DE)
  Receive Date: 20221118
  Receipt Date: 20221118
  Transmission Date: 20230113
  Serious: Yes (Hospitalization)
  Sender: FDA-Public Use
  Company Number: DE-ADRED-08237-01

PATIENT
  Age: 66 Year
  Sex: Male
  Weight: 86.6 kg

DRUGS (7)
  1. METFORMIN [Suspect]
     Active Substance: METFORMIN HYDROCHLORIDE
     Indication: Product used for unknown indication
     Dosage: 1000 MILLIGRAM, BID(1000 MG, 1-0-1-0)
     Route: 065
  2. ACLIDINIUM BROMIDE [Concomitant]
     Active Substance: ACLIDINIUM BROMIDE
     Dosage: 322 ?G,BID 1-0-1-0, INHALATION POWDER
  3. IBUPROFEN [Concomitant]
     Active Substance: IBUPROFEN
     Dosage: 600 MILLIGRAM, PRN, DEMAND
     Route: 065
  4. ACETYLCYSTEINE [Concomitant]
     Active Substance: ACETYLCYSTEINE
     Dosage: 200 MG, PRN, DEMAND, EFFERVESCENT TABLET
     Route: 065
  5. MOMETASONE [Concomitant]
     Active Substance: MOMETASONE
     Dosage: PRN (DEMAND, NASAL SPRAY)
     Route: 065
  6. ALBUTEROL [Concomitant]
     Active Substance: ALBUTEROL
     Dosage: 0.1 MG,DEMAND, METERED DOSE INHALER
  7. EMPAGLIFLOZIN [Concomitant]
     Active Substance: EMPAGLIFLOZIN
     Dosage: 25 MILLIGRAM, QD(25 MG, 1-0-0-0)
     Route: 065

REACTIONS (7)
  - Atrial fibrillation [Unknown]
  - Chest discomfort [Unknown]
  - Hypoaesthesia [Unknown]
  - Tachycardia [Unknown]
  - Palpitations [Unknown]
  - Lactic acidosis [Unknown]
  - Anion gap increased [Unknown]
